FAERS Safety Report 4682436-7 (Version None)
Quarter: 2005Q2

REPORT INFORMATION
  Report Type: 
  Country: None (occurrence: None)
  Receive Date: 20050531
  Receipt Date: 20050228
  Transmission Date: 20051028
  Serious: No
  Sender: FDA-Public Use
  Company Number: 2005BI004578

PATIENT
  Age: 75 Year
  Sex: Male
  Weight: 53.5244 kg

DRUGS (1)
  1. AMEVIVE [Suspect]
     Indication: PSORIASIS
     Dosage: 15 MG; QW; IM
     Route: 030
     Dates: start: 20041209, end: 20050224

REACTIONS (2)
  - PRURITUS [None]
  - RASH [None]
